FAERS Safety Report 5682646-6 (Version None)
Quarter: 2008Q1

REPORT INFORMATION
  Report Type: 
  Country: None (occurrence: None)
  Receive Date: 20080327
  Receipt Date: 20080204
  Transmission Date: 20080703
  Serious: No
  Sender: FDA-Public Use
  Company Number: US-BRISTOL-MYERS SQUIBB COMPANY-14063465

PATIENT
  Age: 77 Year
  Sex: Female
  Weight: 63 kg

DRUGS (1)
  1. ORENCIA [Suspect]
     Indication: RHEUMATOID ARTHRITIS
     Dosage: FIRST DOSE ON DEC07 AND SECOND DOSE ON 17JAN08
     Route: 042
     Dates: start: 20071201, end: 20080117

REACTIONS (8)
  - ABDOMINAL PAIN UPPER [None]
  - ANOREXIA [None]
  - ASTHENIA [None]
  - DIZZINESS [None]
  - HEADACHE [None]
  - INSOMNIA [None]
  - NAUSEA [None]
  - WHITE BLOOD CELL DISORDER [None]
